FAERS Safety Report 4786100-5 (Version None)
Quarter: 2005Q3

REPORT INFORMATION
  Report Type: 
  Country: None (occurrence: None)
  Receive Date: 20050930
  Receipt Date: 20050920
  Transmission Date: 20060218
  Serious: Yes (Hospitalization)
  Sender: FDA-Public Use
  Company Number: 2005-03532

PATIENT
  Age: 15 Year
  Sex: Female

DRUGS (4)
  1. IBUPROFEN [Suspect]
     Indication: INFLUENZA
     Dosage: 600 MG TOTAL PER DAY, ORAL
     Route: 048
     Dates: start: 20050101
  2. PSEUDOEPHEDRINE HCL [Suspect]
     Indication: INFLUENZA
     Dosage: 90 MG, TOTAL PER DAY, ORAL
     Route: 048
     Dates: start: 20050101
  3. PHOLCODINE TAB [Concomitant]
  4. ACETAMINOPHEN [Concomitant]

REACTIONS (2)
  - COLITIS ISCHAEMIC [None]
  - DRUG INTERACTION POTENTIATION [None]
